FAERS Safety Report 9787194 (Version 1)
Quarter: 2013Q4

REPORT INFORMATION
  Report Type: Report from Study
  Country: TR (occurrence: TR)
  Receive Date: 20131229
  Receipt Date: 20131229
  Transmission Date: 20140711
  Serious: Yes (Other)
  Sender: FDA-Public Use
  Company Number: TR-CELGENEUS-161-20785-13123668

PATIENT
  Sex: 0

DRUGS (1)
  1. THALIDOMIDE CELGENE [Suspect]
     Indication: PLASMA CELL MYELOMA
     Route: 048

REACTIONS (1)
  - Cardiac disorder [Unknown]
